FAERS Safety Report 10425238 (Version 1)
Quarter: 2014Q3

REPORT INFORMATION
  Report Type: Spontaneous
  Country: US (occurrence: US)
  Receive Date: 20140902
  Receipt Date: 20140902
  Transmission Date: 20150326
  Serious: Yes (Other)
  Sender: FDA-Public Use
  Company Number: US-FRI-1000070321

PATIENT
  Age: 29 Year
  Sex: Female
  Weight: 77 kg

DRUGS (1)
  1. SAPHRIS [Suspect]
     Active Substance: ASENAPINE MALEATE
     Indication: BIPOLAR DISORDER
     Route: 060
     Dates: start: 20130522, end: 20130522

REACTIONS (6)
  - Hypoaesthesia oral [Unknown]
  - Screaming [Unknown]
  - Somnolence [Unknown]
  - Abnormal dreams [Unknown]
  - Feeling abnormal [Unknown]
  - Glossodynia [Unknown]

NARRATIVE: CASE EVENT DATE: 20130522
